FAERS Safety Report 17889229 (Version 1)
Quarter: 2020Q2

REPORT INFORMATION
  Report Type: Spontaneous
  Country: US (occurrence: US)
  Receive Date: 20200612
  Receipt Date: 20200612
  Transmission Date: 20200714
  Serious: Yes (Hospitalization)
  Sender: FDA-Public Use
  Company Number: None

PATIENT
  Age: 43 Year
  Sex: Female

DRUGS (9)
  1. TIZANIDINE. [Concomitant]
     Active Substance: TIZANIDINE
  2. GABAPENTIN. [Concomitant]
     Active Substance: GABAPENTIN
  3. OCREVUS [Concomitant]
     Active Substance: OCRELIZUMAB
  4. RAMIPRIL. [Concomitant]
     Active Substance: RAMIPRIL
  5. ENTECAVIR. [Concomitant]
     Active Substance: ENTECAVIR
  6. FLUTICASONE SPR [Concomitant]
  7. SUMATRIPTAN. [Concomitant]
     Active Substance: SUMATRIPTAN
  8. DALFAMPRIDINE. [Suspect]
     Active Substance: DALFAMPRIDINE
     Indication: MULTIPLE SCLEROSIS
     Dosage: ?          OTHER FREQUENCY:EVERY 12 HOURS;?
     Route: 048
     Dates: start: 20191118
  9. DULOXETINE. [Concomitant]
     Active Substance: DULOXETINE

REACTIONS (1)
  - Condition aggravated [None]

NARRATIVE: CASE EVENT DATE: 20200601
